FAERS Safety Report 15037224 (Version 2)
Quarter: 2018Q4

REPORT INFORMATION
  Report Type: Spontaneous
  Country: PT (occurrence: PT)
  Receive Date: 20180620
  Receipt Date: 20181012
  Transmission Date: 20190204
  Serious: Yes (Other)
  Sender: FDA-Public Use
  Company Number: PT-BAUSCH-BL-2018-016947

PATIENT
  Sex: Female

DRUGS (2)
  1. MIOCHOLA 20 MG, PO E SOLVENTE PARA SOLUCAO INTRA-OCULAR [Suspect]
     Active Substance: ACETYLCHOLINE CHLORIDE
     Dosage: INTRACAMERAL INJECTION?USUAL DOSING, AMPOULE
     Route: 050
  2. MIOCHOLA 20 MG, PO E SOLVENTE PARA SOLUCAO INTRA-OCULAR [Suspect]
     Active Substance: ACETYLCHOLINE CHLORIDE
     Indication: MYDRIASIS
     Dosage: INTRACAMERAL INJECTION?USUAL DOSING
     Route: 050

REACTIONS (2)
  - Intraocular lens repositioning [Unknown]
  - Drug ineffective [Unknown]
